FAERS Safety Report 13020670 (Version 1)
Quarter: 2016Q4

REPORT INFORMATION
  Report Type: Spontaneous
  Country: US (occurrence: US)
  Receive Date: 20161212
  Receipt Date: 20161212
  Transmission Date: 20170207
  Serious: No
  Sender: FDA-Public Use
  Company Number: None

PATIENT
  Age: 71 Year
  Weight: 164 kg

DRUGS (1)
  1. VANCOMYCIN 1000MG FRESENSIUS [Suspect]
     Active Substance: VANCOMYCIN
     Indication: CELLULITIS
     Route: 042
     Dates: start: 20161117, end: 20161207

REACTIONS (2)
  - Rash generalised [None]
  - Therapy cessation [None]

NARRATIVE: CASE EVENT DATE: 20161207
